FAERS Safety Report 11401330 (Version 3)
Quarter: 2015Q3

REPORT INFORMATION
  Report Type: Spontaneous
  Country: US (occurrence: US)
  Receive Date: 20150820
  Receipt Date: 20150921
  Transmission Date: 20151125
  Serious: Yes (Death, Hospitalization)
  Sender: FDA-Public Use
  Company Number: US-ACTELION-A-US2015-122547

PATIENT
  Age: 76 Year
  Sex: Male

DRUGS (13)
  1. CIPROFLOXACIN. [Concomitant]
     Active Substance: CIPROFLOXACIN
  2. TRACLEER [Suspect]
     Active Substance: BOSENTAN
     Indication: PULMONARY HYPERTENSION
     Dosage: UNK
     Route: 048
     Dates: start: 20130707, end: 20150812
  3. ASA [Concomitant]
     Active Substance: ASPIRIN
  4. INSULIN [Concomitant]
     Active Substance: INSULIN NOS
  5. XARELTO [Concomitant]
     Active Substance: RIVAROXABAN
  6. PEPCID [Concomitant]
     Active Substance: FAMOTIDINE
  7. ALBUMIN [Concomitant]
     Active Substance: ALBUMIN (HUMAN)
  8. ADCIRCA [Concomitant]
     Active Substance: TADALAFIL
  9. HEPARIN [Concomitant]
     Active Substance: HEPARIN SODIUM
  10. CELEXA [Concomitant]
     Active Substance: CITALOPRAM HYDROBROMIDE
  11. LEVAQUIN [Concomitant]
     Active Substance: LEVOFLOXACIN
  12. SOLU-MEDROL [Concomitant]
     Active Substance: METHYLPREDNISOLONE SODIUM SUCCINATE
  13. ZOSYN [Concomitant]
     Active Substance: PIPERACILLIN SODIUM\TAZOBACTAM SODIUM

REACTIONS (9)
  - Renal impairment [Fatal]
  - Chronic obstructive pulmonary disease [Fatal]
  - Acute respiratory failure [Fatal]
  - Diarrhoea [Unknown]
  - Hypotension [Unknown]
  - Consciousness fluctuating [Unknown]
  - Clostridium difficile infection [Unknown]
  - Multi-organ failure [Fatal]
  - Oedema [Unknown]

NARRATIVE: CASE EVENT DATE: 20150812
